FAERS Safety Report 17916354 (Version 2)
Quarter: 2020Q2

REPORT INFORMATION
  Report Type: Report from Study
  Country: DK (occurrence: DK)
  Receive Date: 20200619
  Receipt Date: 20200625
  Transmission Date: 20200714
  Serious: Yes (Life-Threatening, Hospitalization, Other)
  Sender: FDA-Public Use
  Company Number: DK-PFIZER INC-2020235734

PATIENT
  Age: 59 Year
  Sex: Female
  Weight: 62 kg

DRUGS (6)
  1. VITAMIN C ACID [Concomitant]
     Active Substance: ASCORBIC ACID
     Dates: end: 20200120
  2. PANTOPRAZOLE [Concomitant]
     Active Substance: PANTOPRAZOLE
  3. VITAMIN B NOS [Concomitant]
     Active Substance: VITAMIN B
     Dates: end: 20200120
  4. FRAGMIN [Suspect]
     Active Substance: DALTEPARIN SODIUM
     Indication: PORTAL VEIN THROMBOSIS
     Dosage: 12500 IU, 1X/DAY
     Route: 058
     Dates: start: 20200212
  5. PREDNISOLONE. [Concomitant]
     Active Substance: PREDNISOLONE
     Dates: start: 20200120
  6. POTASSIUM CHLORIDE. [Concomitant]
     Active Substance: POTASSIUM CHLORIDE
     Dosage: UNK
     Dates: start: 20200211

REACTIONS (8)
  - Encephalopathy [Recovered/Resolved with Sequelae]
  - Loss of consciousness [Recovered/Resolved]
  - Gastrointestinal haemorrhage [Recovered/Resolved]
  - Gastric ulcer [Recovered/Resolved]
  - Anaemia [Recovered/Resolved]
  - Somnolence [Not Recovered/Not Resolved]
  - Seizure [Not Recovered/Not Resolved]
  - Cerebral infarction [Not Recovered/Not Resolved]

NARRATIVE: CASE EVENT DATE: 20200220
